FAERS Safety Report 16387432 (Version 1)
Quarter: 2019Q2

REPORT INFORMATION
  Report Type: Report from Study
  Country: IT (occurrence: IT)
  Receive Date: 20190604
  Receipt Date: 20190604
  Transmission Date: 20190711
  Serious: Yes (Other)
  Sender: FDA-Public Use
  Company Number: IT-TEVA-2019-IT-1057843

PATIENT
  Age: 44 Year
  Sex: Male

DRUGS (6)
  1. LITHIUM CARBONATE. [Concomitant]
     Active Substance: LITHIUM CARBONATE
  2. OLANZAPINE. [Concomitant]
     Active Substance: OLANZAPINE
  3. LORAZEPAM. [Suspect]
     Active Substance: LORAZEPAM
     Indication: AGITATION
     Route: 048
  4. MOMENT [Suspect]
     Active Substance: IBUPROFEN
     Indication: HEADACHE
     Route: 048
     Dates: start: 20190303, end: 20190303
  5. TACHIPIRINA [Suspect]
     Active Substance: ACETAMINOPHEN
     Indication: HEADACHE
     Dates: start: 20190303, end: 20190303
  6. ENTUMIN 100 MG/ML GOCCE ORALI, SOLUZIONE [Concomitant]
     Active Substance: CLOTHIAPINE

REACTIONS (3)
  - Drug abuse [Recovering/Resolving]
  - Aphasia [Recovering/Resolving]
  - Sopor [Recovering/Resolving]

NARRATIVE: CASE EVENT DATE: 20190303
